FAERS Safety Report 23946358 (Version 2)
Quarter: 2024Q2

REPORT INFORMATION
  Report Type: Spontaneous
  Country: GR (occurrence: GR)
  Receive Date: 20240606
  Receipt Date: 20240611
  Transmission Date: 20240716
  Serious: Yes (Other)
  Sender: FDA-Public Use
  Company Number: GR-PFIZER INC-PV202400072494

PATIENT
  Age: 6 Year
  Sex: Male
  Weight: 19 kg

DRUGS (3)
  1. GENOTROPIN [Suspect]
     Active Substance: SOMATROPIN
     Indication: Hypopituitarism
     Dosage: 4 MG, 7 DAYS A WEEK
     Route: 058
     Dates: start: 20230616
  2. LEVOTHYROXINE [Concomitant]
     Active Substance: LEVOTHYROXINE\LEVOTHYROXINE SODIUM
     Dosage: UNK
  3. HYDROCORTISONE [Concomitant]
     Active Substance: HYDROCORTISONE\HYDROCORTISONE ACETATE
     Dosage: 2.5 MG IN THE MORNING, 2 MG AT NOON AND 2 MG IN THE EVENING

REACTIONS (5)
  - Insulin-like growth factor decreased [Unknown]
  - Wrong technique in device usage process [Unknown]
  - Device use issue [Unknown]
  - Drug dose omission by device [Unknown]
  - Device malfunction [Unknown]
